FAERS Safety Report 6032521-2 (Version None)
Quarter: 2009Q1

REPORT INFORMATION
  Report Type: 
  Country: None (occurrence: None)
  Receive Date: 20090109
  Receipt Date: 20081104
  Transmission Date: 20090719
  Serious: No
  Sender: FDA-Public Use
  Company Number: A0754802A

PATIENT
  Age: 49 Year
  Sex: Female

DRUGS (1)
  1. TYKERB [Suspect]
     Indication: BREAST CANCER
     Dosage: 250MG FIVE TIMES PER DAY
     Route: 048
     Dates: start: 20080101

REACTIONS (2)
  - HAIR GROWTH ABNORMAL [None]
  - MUSCLE SPASMS [None]
